FAERS Safety Report 13081566 (Version 3)
Quarter: 2017Q1

REPORT INFORMATION
  Report Type: Report from Study
  Country: JP (occurrence: JP)
  Receive Date: 20170103
  Receipt Date: 20170215
  Transmission Date: 20170428
  Serious: Yes (Death, Life-Threatening, Hospitalization, Other)
  Sender: FDA-Public Use
  Company Number: JP-CELGENEUS-JPN-2016105686

PATIENT
  Age: 84 Year
  Sex: Female

DRUGS (8)
  1. LANSOPRAZOLE. [Concomitant]
     Active Substance: LANSOPRAZOLE
     Indication: PROPHYLAXIS
     Dosage: 15 MILLIGRAM
     Route: 048
     Dates: start: 20160930, end: 20161028
  2. BAKTAR [Concomitant]
     Active Substance: SULFAMETHOXAZOLE\TRIMETHOPRIM
     Indication: INFECTION PROPHYLAXIS
     Dosage: 1 DOSAGE FORMS
     Route: 048
     Dates: start: 20160930, end: 20161019
  3. ASTRIC [Concomitant]
     Active Substance: ACYCLOVIR
     Indication: INFECTION PROPHYLAXIS
     Dosage: .25 GRAM
     Route: 048
     Dates: start: 20161007, end: 20161019
  4. REVLIMID [Suspect]
     Active Substance: LENALIDOMIDE
     Dosage: 25 MILLIGRAM
     Route: 048
     Dates: start: 20161015, end: 20161019
  5. DIART [Concomitant]
     Active Substance: AZOSEMIDE
     Indication: NEPHROTIC SYNDROME
     Dosage: 60 MILLIGRAM
     Route: 048
     Dates: start: 20160930, end: 20161019
  6. REVLIMID [Suspect]
     Active Substance: LENALIDOMIDE
     Indication: PLASMA CELL MYELOMA
     Dosage: 25 MILLIGRAM
     Route: 048
     Dates: start: 20161011, end: 20161014
  7. LENADEX [Suspect]
     Active Substance: DEXAMETHASONE ACETATE
     Indication: PLASMA CELL MYELOMA
     Dosage: 20 MILLIGRAM
     Route: 048
     Dates: start: 20161011, end: 20161019
  8. BAYASPIRIN [Concomitant]
     Active Substance: ASPIRIN
     Indication: PROPHYLAXIS
     Dosage: 100 MILLIGRAM
     Route: 048
     Dates: start: 20161007, end: 20161019

REACTIONS (6)
  - Dehydration [Fatal]
  - Haemoglobin decreased [Unknown]
  - Decreased appetite [Unknown]
  - Enterocolitis [Recovered/Resolved]
  - Acute prerenal failure [Fatal]
  - Pleural effusion [Unknown]

NARRATIVE: CASE EVENT DATE: 201610
